FAERS Safety Report 18864854 (Version 3)
Quarter: 2023Q1

REPORT INFORMATION
  Report Type: Report from Study
  Country: JP (occurrence: JP)
  Receive Date: 20210208
  Receipt Date: 20230123
  Transmission Date: 20230418
  Serious: Yes (Hospitalization)
  Sender: FDA-Public Use
  Company Number: JP-EISAI-202009745_PENT_C_1

PATIENT
  Age: 60 Year
  Sex: Male
  Weight: 65 kg

DRUGS (10)
  1. E-7386 [Suspect]
     Active Substance: E-7386
     Indication: Pancreatic carcinoma
     Route: 048
     Dates: start: 20201216, end: 20201221
  2. E-7386 [Suspect]
     Active Substance: E-7386
     Route: 048
     Dates: start: 20201223, end: 20210202
  3. LENVATINIB [Suspect]
     Active Substance: LENVATINIB
     Indication: Pancreatic carcinoma
     Route: 048
     Dates: start: 20201223, end: 20210130
  4. FERROUS SULFATE [Concomitant]
     Active Substance: FERROUS SULFATE
     Indication: Anaemia
     Route: 048
  5. BEZAFIBRATE [Concomitant]
     Active Substance: BEZAFIBRATE
     Indication: Hyperlipidaemia
     Route: 048
     Dates: start: 201904
  6. URSO [Concomitant]
     Active Substance: URSODIOL
     Indication: Hepatic steatosis
     Route: 048
  7. NEXIUM [Concomitant]
     Active Substance: ESOMEPRAZOLE MAGNESIUM
     Indication: Gastritis
     Route: 048
     Dates: start: 201812
  8. PANCRELIPASE [Concomitant]
     Active Substance: PANCRELIPASE
     Indication: Pancreatic enzymes decreased
     Route: 048
  9. BIO-THREE [Concomitant]
     Active Substance: HERBALS
     Indication: Dysbiosis
     Route: 048
     Dates: start: 201910
  10. CALONAL [Concomitant]
     Active Substance: ACETAMINOPHEN
     Indication: Pyrexia
     Route: 048
     Dates: start: 20201231

REACTIONS (1)
  - Hepatic infection [Recovering/Resolving]

NARRATIVE: CASE EVENT DATE: 20210202
